FAERS Safety Report 4514623-2 (Version None)
Quarter: 2004Q4

REPORT INFORMATION
  Report Type: 
  Country: None (occurrence: None)
  Receive Date: 20041126
  Receipt Date: 20041109
  Transmission Date: 20050328
  Serious: Yes (Other)
  Sender: FDA-Public Use
  Company Number: DSA_25382_2004

PATIENT
  Age: 65 Year
  Sex: Female

DRUGS (4)
  1. ENALAPRIL [Suspect]
     Indication: HYPERTENSION
  2. LOSARTAN [Suspect]
     Indication: BLOOD PRESSURE INADEQUATELY CONTROLLED
  3. PHENOBARBITONE [Concomitant]
  4. CARBAMAZEPINE [Concomitant]

REACTIONS (20)
  - ABDOMINAL DISTENSION [None]
  - ABDOMINAL PAIN LOWER [None]
  - ABDOMINAL TENDERNESS [None]
  - ANAEMIA [None]
  - ANGIONEUROTIC OEDEMA [None]
  - BLOOD PRESSURE INADEQUATELY CONTROLLED [None]
  - DEMENTIA [None]
  - DEPRESSED MOOD [None]
  - DRUG INEFFECTIVE [None]
  - FOLATE DEFICIENCY [None]
  - HYPOALBUMINAEMIA [None]
  - HYPOVITAMINOSIS [None]
  - IRON DEFICIENCY [None]
  - LEUKOCYTOSIS [None]
  - MALNUTRITION [None]
  - MARKEDLY REDUCED DIETARY INTAKE [None]
  - MEDICATION ERROR [None]
  - NEUTROPHIL COUNT INCREASED [None]
  - OEDEMA PERIPHERAL [None]
  - VITAMIN B12 DEFICIENCY [None]
